FAERS Safety Report 4496765-3 (Version None)
Quarter: 2004Q4

REPORT INFORMATION
  Report Type: 
  Country: None (occurrence: None)
  Receive Date: 20041109
  Receipt Date: 20041014
  Transmission Date: 20050328
  Serious: Yes (Hospitalization)
  Sender: FDA-Public Use
  Company Number: ES-ROCHE-383143

PATIENT
  Age: 51 Year
  Sex: Male
  Weight: 85 kg

DRUGS (9)
  1. DACLIZUMAB [Suspect]
     Route: 042
     Dates: start: 20040921
  2. MYCOPHENOLATE MOFETIL [Suspect]
     Route: 048
  3. CYCLOSPORINE [Suspect]
     Route: 048
     Dates: start: 20040921, end: 20041013
  4. CYCLOSPORINE [Suspect]
     Route: 048
     Dates: start: 20041014
  5. PREDNISONE [Suspect]
     Route: 048
     Dates: start: 20040922, end: 20041012
  6. PREDNISONE [Suspect]
     Route: 048
     Dates: start: 20041013
  7. FUROSEMIDE [Concomitant]
     Route: 048
     Dates: start: 20040924
  8. RANUBER [Concomitant]
     Route: 048
     Dates: start: 20040923
  9. AUGMENTIN '125' [Concomitant]
     Route: 048
     Dates: start: 20041019

REACTIONS (9)
  - ARTERIAL OCCLUSIVE DISEASE [None]
  - COMPLICATIONS OF TRANSPLANTED KIDNEY [None]
  - CONGENITAL CYSTIC KIDNEY DISEASE [None]
  - CYTOMEGALOVIRUS INFECTION [None]
  - HAEMODIALYSIS [None]
  - NEPHROLITHIASIS [None]
  - PERIRENAL HAEMATOMA [None]
  - POST PROCEDURAL COMPLICATION [None]
  - RENAL CYST [None]
